FAERS Safety Report 8667599 (Version 3)
Quarter: 2012Q4

REPORT INFORMATION
  Report Type: Report from Study
  Country: CA (occurrence: CA)
  Receive Date: 20120717
  Receipt Date: 20120831
  Transmission Date: 20130627
  Serious: Yes (Hospitalization)
  Sender: FDA-Public Use
  Company Number: CA-SANOFI-AVENTIS-2012SA048501

PATIENT
  Age: 70 Year
  Sex: Male

DRUGS (7)
  1. CABAZITAXEL [Suspect]
     Indication: PROSTATE CANCER METASTATIC
     Route: 042
     Dates: start: 20120605, end: 20120605
  2. CABAZITAXEL [Suspect]
     Indication: PROSTATE CANCER METASTATIC
     Route: 042
     Dates: start: 20120626, end: 20120626
  3. PREDNISONE [Suspect]
     Indication: PROSTATE CANCER METASTATIC
     Route: 048
     Dates: start: 20120605, end: 20120605
  4. SIMVASTATIN [Concomitant]
     Route: 048
     Dates: start: 199112
  5. EZETROL [Concomitant]
     Route: 048
     Dates: start: 199112
  6. BISOPROLOL [Concomitant]
     Route: 048
     Dates: start: 1991
  7. ASA [Concomitant]
     Route: 048
     Dates: start: 1991

REACTIONS (1)
  - Small intestinal obstruction [Recovered/Resolved]
